FAERS Safety Report 16120405 (Version 1)
Quarter: 2019Q1

REPORT INFORMATION
  Report Type: Spontaneous
  Country: FR (occurrence: FR)
  Receive Date: 20190326
  Receipt Date: 20190326
  Transmission Date: 20190418
  Serious: Yes (Hospitalization)
  Sender: FDA-Public Use
  Company Number: FR-BAXTER-2019BAX005730

PATIENT
  Age: 68 Year
  Sex: Female
  Weight: 77 kg

DRUGS (3)
  1. ENDOXAN 1000 MG, POUDRE POUR SOLUTIONINJECTABLE [Suspect]
     Active Substance: CYCLOPHOSPHAMIDE
     Indication: SYSTEMIC LUPUS ERYTHEMATOSUS
     Route: 041
     Dates: start: 20190110
  2. MESNA EG [Suspect]
     Active Substance: MESNA
     Indication: CHEMOTHERAPY TOXICITY ATTENUATION
     Dosage: SOLUTION FOR INJECTION FOR INFUSION
     Route: 041
     Dates: start: 20190110
  3. METHYLPREDNISOLONE MYLAN [Concomitant]
     Active Substance: METHYLPREDNISOLONE
     Indication: CHEMOTHERAPY TOXICITY ATTENUATION
     Route: 042
     Dates: start: 20190110, end: 20190114

REACTIONS (3)
  - Condition aggravated [Recovering/Resolving]
  - Hypoacusis [Recovering/Resolving]
  - Tinnitus [Recovering/Resolving]

NARRATIVE: CASE EVENT DATE: 20190114
